FAERS Safety Report 25219474 (Version 1)
Quarter: 2025Q2

REPORT INFORMATION
  Report Type: Spontaneous
  Country: US (occurrence: None)
  Receive Date: 20250418
  Receipt Date: 20250418
  Transmission Date: 20250717
  Serious: No
  Sender: FDA-CTU
  Company Number: None

PATIENT
  Age: 71 Year
  Sex: Female
  Weight: 81.65 kg

DRUGS (12)
  1. GEMTESA [Suspect]
     Active Substance: VIBEGRON
     Indication: Nocturia
     Dosage: 1 PILL A DY IN THE MORNING BY MOUTH
     Route: 048
  2. ALENDRONATE [Concomitant]
     Active Substance: ALENDRONATE SODIUM
  3. VESICARE [Concomitant]
     Active Substance: SOLIFENACIN SUCCINATE
  4. METOPROLOL [Concomitant]
     Active Substance: METOPROLOL
  5. LASIX [Concomitant]
     Active Substance: FUROSEMIDE
  6. TRAMADOL [Concomitant]
     Active Substance: TRAMADOL
  7. VITAMINS [Concomitant]
     Active Substance: VITAMINS
  8. CALCIUM CITRATE [Concomitant]
     Active Substance: CALCIUM CITRATE
  9. VITAMINS [Suspect]
     Active Substance: VITAMINS
  10. RESTASIS [Concomitant]
     Active Substance: CYCLOSPORINE
  11. ESOTROPIA [Concomitant]
  12. VITAMINS [Concomitant]
     Active Substance: VITAMINS

REACTIONS (4)
  - Asthenia [None]
  - Blood pressure increased [None]
  - Product substitution issue [None]
  - Drug ineffective [None]

NARRATIVE: CASE EVENT DATE: 20240911
